FAERS Safety Report 26180573 (Version 1)
Quarter: 2025Q4

REPORT INFORMATION
  Report Type: Spontaneous
  Country: US (occurrence: US)
  Receive Date: 20251219
  Receipt Date: 20251219
  Transmission Date: 20260118
  Serious: No
  Sender: MILLICENT HOLDINGS
  Company Number: US-Millicent Holdings Ltd.-MILL20250370

PATIENT
  Age: 54 Year
  Sex: Female

DRUGS (2)
  1. INTRAROSA [Suspect]
     Active Substance: PRASTERONE
     Indication: Atrophic vulvovaginitis
     Dosage: DAILY
     Route: 067
  2. INTRAROSA [Suspect]
     Active Substance: PRASTERONE
     Indication: Pelvic floor repair
     Dosage: DAILY
     Route: 067
     Dates: start: 2023

REACTIONS (5)
  - Off label use [Unknown]
  - Contraindicated product administered [Unknown]
  - Product colour issue [Unknown]
  - Poor quality product administered [Unknown]
  - Product label issue [Unknown]

NARRATIVE: CASE EVENT DATE: 20230101
